FAERS Safety Report 6192415-9 (Version None)
Quarter: 2009Q2

REPORT INFORMATION
  Report Type: 
  Country: None (occurrence: None)
  Receive Date: 20090518
  Receipt Date: 20090513
  Transmission Date: 20091009
  Serious: Yes (Hospitalization, Disabling)
  Sender: FDA-Public Use
  Company Number: IN-WYE-H07958309

PATIENT
  Sex: Male
  Weight: 37 kg

DRUGS (7)
  1. BEVACIZUMAB [Suspect]
     Indication: METASTATIC RENAL CELL CARCINOMA
     Route: 042
     Dates: start: 20080927, end: 20090128
  2. BEVACIZUMAB [Suspect]
     Route: 042
     Dates: start: 20090211
  3. DOMPERIDONE [Concomitant]
     Indication: PROPHYLAXIS
     Dosage: UNKNOWN
     Route: 065
     Dates: start: 20080924
  4. LORAZEPAM [Concomitant]
     Indication: INSOMNIA
     Route: 065
     Dates: start: 20080924
  5. PANTOPRAZOLE SODIUM [Concomitant]
     Indication: PROPHYLAXIS
     Dosage: UNKNOWN
     Route: 065
     Dates: start: 20080924
  6. INTERFERON ALFA [Concomitant]
     Indication: METASTATIC RENAL CELL CARCINOMA
     Route: 058
     Dates: start: 20080927
  7. ULTRACET [Concomitant]
     Indication: PAIN
     Dosage: UNKNOWN
     Route: 065
     Dates: start: 20080924

REACTIONS (1)
  - HYPERTENSION [None]
